FAERS Safety Report 9435038 (Version 2)
Quarter: 2013Q3

REPORT INFORMATION
  Report Type: Spontaneous
  Country: US (occurrence: US)
  Receive Date: 20130801
  Receipt Date: 20130924
  Transmission Date: 20140515
  Serious: No
  Sender: FDA-Public Use
  Company Number: US-009507513-1307USA015633

PATIENT
  Sex: Female

DRUGS (1)
  1. DR. SCHOLL^S ONE STEP CORN REMOVERS [Suspect]
     Indication: PRODUCT USED FOR UNKNOWN INDICATION
     Dosage: UNK, UNKNOWN
     Route: 061

REACTIONS (3)
  - Product quality issue [Unknown]
  - Expired drug administered [Unknown]
  - Drug ineffective [Unknown]
